FAERS Safety Report 17431243 (Version 1)
Quarter: 2020Q1

REPORT INFORMATION
  Report Type: Spontaneous
  Country: US (occurrence: US)
  Receive Date: 20200218
  Receipt Date: 20200218
  Transmission Date: 20200409
  Serious: No
  Sender: FDA-Public Use
  Company Number: US-FERRINGPH-2019FE01559

PATIENT
  Sex: Female

DRUGS (1)
  1. NOVAREL [Suspect]
     Active Substance: CHORIOGONADOTROPIN ALFA
     Indication: PRODUCT USED FOR UNKNOWN INDICATION
     Route: 058

REACTIONS (3)
  - Incorrect route of product administration [Not Recovered/Not Resolved]
  - Product reconstitution quality issue [Not Recovered/Not Resolved]
  - Injection site abscess [Not Recovered/Not Resolved]
